FAERS Safety Report 21738465 (Version 1)
Quarter: 2022Q4

REPORT INFORMATION
  Report Type: Spontaneous
  Country: IE (occurrence: IE)
  Receive Date: 20221216
  Receipt Date: 20221216
  Transmission Date: 20230112
  Serious: No
  Sender: FDA-Public Use
  Company Number: IE-ALKEM LABORATORIES LIMITED-IE-ALKEM-2022-13381

PATIENT
  Age: 41 Year
  Sex: Female

DRUGS (2)
  1. LEVETIRACETAM [Suspect]
     Active Substance: LEVETIRACETAM
     Indication: Epilepsy
     Dosage: 2000 MILLIGRAM, QD
     Route: 065
  2. CARBAMAZEPINE [Suspect]
     Active Substance: CARBAMAZEPINE
     Indication: Epilepsy
     Dosage: 1200 MILLIGRAM, QD
     Route: 065

REACTIONS (1)
  - Exposure during pregnancy [Unknown]
